FAERS Safety Report 9086409 (Version 1)
Quarter: 2013Q1

REPORT INFORMATION
  Report Type: Spontaneous
  Country: US (occurrence: US)
  Receive Date: 20130131
  Receipt Date: 20130131
  Transmission Date: 20140127
  Serious: Yes (Death)
  Sender: FDA-Public Use
  Company Number: US-PFIZER INC-2013037969

PATIENT
  Age: 64 Year
  Sex: Female

DRUGS (3)
  1. CAMPTOSAR [Suspect]
     Indication: LUNG CANCER METASTATIC
     Dosage: 300 MG, SINGLE (ONCE)
     Dates: start: 20121204, end: 20121204
  2. CAMPTOSAR [Suspect]
     Dosage: 300 MG, SINGLE (ONCE)
     Dates: start: 20121226, end: 20121226
  3. ERBITUX [Suspect]
     Indication: LUNG NEOPLASM MALIGNANT
     Dosage: 840 MG, UNK

REACTIONS (1)
  - Death [Fatal]
